FAERS Safety Report 10035189 (Version 1)
Quarter: 2014Q1

REPORT INFORMATION
  Report Type: Spontaneous
  Country: US (occurrence: US)
  Receive Date: 20140325
  Receipt Date: 20140325
  Transmission Date: 20141002
  Serious: Yes (Death, Other)
  Sender: FDA-Public Use
  Company Number: US-CUBIST PHARMACEUTICAL, INC.-2014CBST000438

PATIENT
  Sex: 0

DRUGS (8)
  1. CUBICIN [Suspect]
     Indication: ENTEROCOCCAL INFECTION
     Dosage: UNK
     Route: 042
  2. CUBICIN [Suspect]
     Indication: PERITONITIS
     Dosage: 100 MG/ML IN 2000 ML DIANEAL PERITONEAL DIALYSIS SOLUTION, FOR 6 HOURS
     Route: 033
  3. CUBICIN [Suspect]
     Indication: OFF LABEL USE
  4. DEXTROSE [Concomitant]
     Indication: ENTEROCOCCAL INFECTION
     Dosage: 1.5 %, UNK
     Route: 033
  5. DEXTROSE [Concomitant]
     Indication: PERITONITIS
  6. HEPARIN [Concomitant]
     Indication: ENTEROCOCCAL INFECTION
     Dosage: 1000 UNITS IN 2000 ML DIANEAL PERITONEAL DIALYSIS SOLUTION, UNK
     Route: 033
  7. HEPARIN [Concomitant]
     Indication: PERITONITIS
  8. HEPARIN [Concomitant]
     Indication: OFF LABEL USE

REACTIONS (4)
  - Respiratory failure [Fatal]
  - Peritoneal fluid analysis abnormal [None]
  - Serratia infection [Unknown]
  - Candida infection [Unknown]
